FAERS Safety Report 5444337-6 (Version None)
Quarter: 2007Q3

REPORT INFORMATION
  Report Type: 
  Country: None (occurrence: None)
  Receive Date: 20070831
  Receipt Date: 20070817
  Transmission Date: 20080115
  Serious: Yes (Hospitalization, Other)
  Sender: FDA-Public Use
  Company Number: 2007EU001828

PATIENT
  Age: 49 Year
  Sex: Male

DRUGS (8)
  1. TACROLIMUS [Suspect]
     Indication: LUNG TRANSPLANT
     Dosage: DF,/D, DF, /D
     Dates: start: 20050101, end: 20050101
  2. TACROLIMUS [Suspect]
     Indication: LUNG TRANSPLANT
     Dosage: DF,/D, DF, /D
     Dates: start: 20050101
  3. AZATHIOPRINE [Suspect]
     Indication: LUNG TRANSPLANT
     Dosage: /D
     Dates: start: 20050101, end: 20050101
  4. AZATHIOPRINE [Suspect]
     Indication: LUNG TRANSPLANT
     Dosage: /D
     Dates: start: 20050101, end: 20050101
  5. CYCLOSPORINE(CICLOSPORIN) [Suspect]
     Indication: LUNG TRANSPLANT
     Dosage: /D
     Dates: start: 20050101, end: 20050101
  6. PREDNISONE TAB [Concomitant]
  7. COTRIMOXAZOLE RATIOPHARM (SULFAMETHOXAZOLE, TRIMETHOPRIM) [Concomitant]
  8. VALACICLOVIR (VALACICLOVIR HYDROCHLORIDE) [Concomitant]

REACTIONS (13)
  - ABDOMINAL PAIN [None]
  - ASCITES [None]
  - DRUG LEVEL ABOVE THERAPEUTIC [None]
  - JOINT SWELLING [None]
  - LEUKOPENIA [None]
  - LUNG TRANSPLANT REJECTION [None]
  - OBLITERATIVE BRONCHIOLITIS [None]
  - OEDEMA PERIPHERAL [None]
  - PERITONEAL EFFUSION [None]
  - PLEURAL EFFUSION [None]
  - RENAL FAILURE ACUTE [None]
  - VENOOCCLUSIVE LIVER DISEASE [None]
  - WAIST CIRCUMFERENCE INCREASED [None]
